FAERS Safety Report 9723568 (Version 2)
Quarter: 2013Q4

REPORT INFORMATION
  Report Type: Spontaneous
  Country: SE (occurrence: DE)
  Receive Date: 20131202
  Receipt Date: 20131206
  Transmission Date: 20140711
  Serious: Yes (Other)
  Sender: FDA-Public Use
  Company Number: DE-TEVA-447958GER

PATIENT
  Sex: 0

DRUGS (1)
  1. MIRTAZAPINE [Suspect]

REACTIONS (1)
  - Rhabdomyolysis [Unknown]
